FAERS Safety Report 20793820 (Version 1)
Quarter: 2022Q2

REPORT INFORMATION
  Report Type: Other
  Country: None (occurrence: IN)
  Receive Date: 20220506
  Receipt Date: 20220506
  Transmission Date: 20220721
  Serious: Yes (Hospitalization, Other)
  Sender: FDA-Public Use
  Company Number: IN-Zhejiang Yongtai pharmaceuticals Co..,Ltd.-2128529

PATIENT
  Age: 32 Year
  Sex: Male

DRUGS (1)
  1. GABAPENTIN [Suspect]
     Active Substance: GABAPENTIN
     Indication: Product used for unknown indication
     Route: 065

REACTIONS (6)
  - Toxicity to various agents [Recovered/Resolved]
  - Acute kidney injury [Recovered/Resolved]
  - Overdose [Recovered/Resolved]
  - Rhabdomyolysis [Recovered/Resolved]
  - Respiratory distress [Recovered/Resolved]
  - Loss of consciousness [Recovered/Resolved]
